FAERS Safety Report 7283343-6 (Version None)
Quarter: 2011Q1

REPORT INFORMATION
  Report Type: 
  Country: None (occurrence: None)
  Receive Date: 20110204
  Receipt Date: 20110204
  Transmission Date: 20110831
  Serious: No
  Sender: FDA-Public Use
  Company Number: None

PATIENT
  Age: 79 Year
  Sex: Female
  Weight: 58.9676 kg

DRUGS (2)
  1. PRAVASTATIN [Suspect]
     Indication: BLOOD CHOLESTEROL INCREASED
     Dosage: 80 MG DAILY
     Dates: start: 20100601, end: 20110101
  2. PRAVASTATIN [Suspect]
     Dosage: 40 MG DAILY PRIOR TO 6/2010

REACTIONS (3)
  - MUSCLE DISORDER [None]
  - BACK PAIN [None]
  - MUSCULAR WEAKNESS [None]
